FAERS Safety Report 9138777 (Version 1)
Quarter: 2013Q1

REPORT INFORMATION
  Report Type: Spontaneous
  Country: US (occurrence: US)
  Receive Date: 20130305
  Receipt Date: 20130305
  Transmission Date: 20140127
  Serious: Yes (Hospitalization)
  Sender: FDA-Public Use
  Company Number: US-ENDO PHARMACEUTICALS INC.-PERC20100106

PATIENT
  Age: 50 Year
  Sex: Male
  Weight: 78.54 kg

DRUGS (4)
  1. PERCOCET [Suspect]
     Indication: PAIN
     Dosage: UNK
     Route: 048
  2. OXYCONTIN [Suspect]
     Indication: PAIN
     Route: 048
     Dates: start: 20100708
  3. OXYCONTIN [Suspect]
     Route: 048
     Dates: end: 20100707
  4. SYNTHROID [Concomitant]
     Indication: HYPOTHYROIDISM

REACTIONS (2)
  - Constipation [Unknown]
  - Pain [Unknown]
